FAERS Safety Report 7655738-X (Version None)
Quarter: 2011Q3

REPORT INFORMATION
  Report Type: 
  Country: None (occurrence: None)
  Receive Date: 20110729
  Receipt Date: 20110726
  Transmission Date: 20111222
  Serious: Yes (Other)
  Sender: FDA-Public Use
  Company Number: CIP11001383

PATIENT
  Age: 88 Year
  Sex: Female

DRUGS (9)
  1. METHYCOBAL (MECOBALAMIN) [Concomitant]
  2. CRESTOR [Concomitant]
  3. ETODOLAC [Concomitant]
  4. RISEDRONATE SODIUM [Suspect]
     Indication: OSTEOPOROSIS
     Dosage: 17.5MG ONCE WEEKLY, ORAL
     Route: 048
     Dates: start: 20100901, end: 20110601
  5. ISOSORBIDE MONONITRATE [Concomitant]
  6. ONEALFA (ALFACALCIDOL) [Concomitant]
  7. SENNOSIDE [Concomitant]
  8. MUCOSTA (REBAMIPIDE) [Concomitant]
  9. TENORMIN [Concomitant]

REACTIONS (4)
  - INTERSTITIAL LUNG DISEASE [None]
  - DYSPNOEA EXERTIONAL [None]
  - DIZZINESS [None]
  - RESPIRATORY FAILURE [None]
